FAERS Safety Report 10694780 (Version 1)
Quarter: 2015Q1

REPORT INFORMATION
  Report Type: Spontaneous
  Country: US (occurrence: US)
  Receive Date: 20150107
  Receipt Date: 20150107
  Transmission Date: 20150721
  Serious: No
  Sender: FDA-Public Use
  Company Number: US-ELI_LILLY_AND_COMPANY-US201412005121

PATIENT
  Sex: Female

DRUGS (2)
  1. CYMBALTA [Suspect]
     Active Substance: DULOXETINE HYDROCHLORIDE
     Dosage: 30 MG, QD
     Route: 048
  2. CYMBALTA [Suspect]
     Active Substance: DULOXETINE HYDROCHLORIDE
     Indication: URINARY INCONTINENCE
     Dosage: 60 MG, QD
     Route: 048
     Dates: start: 2009

REACTIONS (7)
  - Nausea [Recovered/Resolved]
  - Vomiting [Recovered/Resolved]
  - Wrong technique in drug usage process [Unknown]
  - Dizziness [Recovered/Resolved]
  - Drug withdrawal syndrome [Unknown]
  - Drug withdrawal headache [Not Recovered/Not Resolved]
  - Dyspepsia [Recovered/Resolved]
